FAERS Safety Report 9671909 (Version 1)
Quarter: 2013Q4

REPORT INFORMATION
  Report Type: Spontaneous
  Country: DE (occurrence: None)
  Receive Date: 20131104
  Receipt Date: 20131104
  Transmission Date: 20140711
  Serious: Yes (Hospitalization, Other)
  Sender: FDA-Public Use
  Company Number: AUR-APL-2013-09111

PATIENT
  Sex: Male

DRUGS (2)
  1. CEFUROXIME [Suspect]
     Indication: PRODUCT USED FOR UNKNOWN INDICATION
     Route: 048
  2. CEFUROXIME [Suspect]
     Indication: PROPHYLAXIS
     Route: 042

REACTIONS (2)
  - Anaphylactic shock [None]
  - Cardiac arrest [None]
